FAERS Safety Report 6504220-1 (Version None)
Quarter: 2009Q4

REPORT INFORMATION
  Report Type: 
  Country: None (occurrence: None)
  Receive Date: 20091217
  Receipt Date: 20091206
  Transmission Date: 20100525
  Serious: No
  Sender: FDA-Public Use
  Company Number: US-B.I. PHARMACEUTICALS,INC./RIDGEFIELD-2009-BP-14078BP

PATIENT
  Age: 76 Year
  Sex: Female

DRUGS (4)
  1. SPIRIVA [Suspect]
     Indication: CHRONIC OBSTRUCTIVE PULMONARY DISEASE
     Dosage: 18 MCG
     Route: 055
     Dates: start: 20070101, end: 20070101
  2. FLOVENT [Concomitant]
  3. VENTOLIN [Concomitant]
  4. ALBUTEROL [Concomitant]

REACTIONS (1)
  - HEART RATE INCREASED [None]
